FAERS Safety Report 21175941 (Version 1)
Quarter: 2022Q3

REPORT INFORMATION
  Report Type: Spontaneous
  Country: CN (occurrence: None)
  Receive Date: 20220805
  Receipt Date: 20220805
  Transmission Date: 20221027
  Serious: Yes (Other)
  Sender: FDA-Public Use
  Company Number: CN-ROCHE-3153386

PATIENT
  Age: 63 Year
  Sex: Female

DRUGS (8)
  1. HERCEPTIN [Suspect]
     Active Substance: TRASTUZUMAB
     Indication: Invasive ductal breast carcinoma
     Dosage: DOCETAXEL + CAPECITABINE + TRASTUZUMAB
     Route: 065
     Dates: start: 20160810
  2. HERCEPTIN [Suspect]
     Active Substance: TRASTUZUMAB
     Dosage: TRASTUZUMAB
     Route: 065
     Dates: end: 20170812
  3. XELODA [Suspect]
     Active Substance: CAPECITABINE
     Indication: Invasive ductal breast carcinoma
     Dosage: DOCETAXEL + CAPECITABINE + TRASTUZUMAB
     Route: 048
     Dates: start: 20160810
  4. PERJETA [Suspect]
     Active Substance: PERTUZUMAB
     Indication: Invasive ductal breast carcinoma
     Route: 042
  5. DOCETAXEL [Concomitant]
     Active Substance: DOCETAXEL
     Indication: Invasive ductal breast carcinoma
     Dosage: TAC
     Dates: start: 20160406
  6. DOCETAXEL [Concomitant]
     Active Substance: DOCETAXEL
     Dosage: DOCETAXEL + CAPECITABINE + TRASTUZUMAB
     Dates: start: 20160810
  7. EPIRUBICIN [Concomitant]
     Active Substance: EPIRUBICIN
     Indication: Invasive ductal breast carcinoma
     Dosage: TAC
     Dates: start: 20160406
  8. CYCLOPHOSPHAMIDE [Concomitant]
     Active Substance: CYCLOPHOSPHAMIDE
     Indication: Invasive ductal breast carcinoma
     Dosage: TAC
     Dates: start: 20160406

REACTIONS (1)
  - Breast cancer recurrent [Unknown]
